FAERS Safety Report 26133685 (Version 2)
Quarter: 2025Q4

REPORT INFORMATION
  Report Type: Spontaneous
  Country: EU (occurrence: EU)
  Receive Date: 20251209
  Receipt Date: 20251218
  Transmission Date: 20260117
  Serious: Yes (Hospitalization, Other)
  Sender: UCB
  Company Number: EU-ABBVIE-6569495

PATIENT
  Age: 53 Year

DRUGS (5)
  1. BIMZELX [Suspect]
     Active Substance: BIMEKIZUMAB-BKZX
     Indication: Product used for unknown indication
     Dosage: 160 MILLIGRAM
  2. RINVOQ [Suspect]
     Active Substance: UPADACITINIB
     Indication: Axial spondyloarthritis
     Dosage: UNK
     Route: 061
  3. NAPROXEN [Suspect]
     Active Substance: NAPROXEN
     Indication: Product used for unknown indication
     Dosage: 250 MILLIGRAM
  4. NAPROXEN [Suspect]
     Active Substance: NAPROXEN
     Dosage: 125 MILLIGRAM
  5. NAPROXEN [Suspect]
     Active Substance: NAPROXEN
     Dosage: 125 MILLIGRAM

REACTIONS (11)
  - Arthralgia [Unknown]
  - Cataract [Unknown]
  - Diabetes mellitus [Unknown]
  - Chronic obstructive pulmonary disease [Unknown]
  - Claustrophobia [Unknown]
  - Bronchitis [Unknown]
  - Axial spondyloarthritis [Unknown]
  - Cough [Unknown]
  - Paraesthesia [Unknown]
  - Pain [Unknown]
  - Depression [Unknown]
